FAERS Safety Report 25445135 (Version 1)
Quarter: 2025Q2

REPORT INFORMATION
  Report Type: Spontaneous
  Country: US (occurrence: None)
  Receive Date: 20250616
  Receipt Date: 20250616
  Transmission Date: 20250716
  Serious: Yes (Other)
  Sender: FDA-CTU
  Company Number: None

PATIENT
  Age: 11 Year
  Sex: Female
  Weight: 32.7 kg

DRUGS (3)
  1. PEGCETACOPLAN [Suspect]
     Active Substance: PEGCETACOPLAN
     Indication: Glomerulonephritis
     Route: 058
     Dates: start: 20250207
  2. ENALAPRIL [Concomitant]
     Active Substance: ENALAPRIL
  3. HYDROXYCHLOROQUINE [Concomitant]
     Active Substance: HYDROXYCHLOROQUINE

REACTIONS (5)
  - Lymphopenia [None]
  - Neutrophil count decreased [None]
  - Multiple allergies [None]
  - Asthma [None]
  - White blood cell count decreased [None]

NARRATIVE: CASE EVENT DATE: 20250612
